FAERS Safety Report 6279309-5 (Version None)
Quarter: 2009Q3

REPORT INFORMATION
  Report Type: 
  Country: None (occurrence: None)
  Receive Date: 20090723
  Receipt Date: 20080911
  Transmission Date: 20100115
  Serious: No
  Sender: FDA-Public Use
  Company Number: US-AMGEN-KDL307782

PATIENT
  Sex: Male
  Weight: 81.3 kg

DRUGS (16)
  1. PROCRIT [Suspect]
     Indication: ANAEMIA
     Dates: start: 20050101
  2. HYZAAR [Concomitant]
     Route: 048
     Dates: start: 19980101
  3. NORVASC [Concomitant]
     Route: 048
     Dates: start: 19980101
  4. GEMFIBROZIL [Concomitant]
     Route: 048
     Dates: start: 19980101
  5. MAGNESIUM [Concomitant]
     Route: 048
     Dates: start: 20050101
  6. PENTASA [Concomitant]
     Route: 048
     Dates: start: 20050101
  7. FOLIC ACID [Concomitant]
     Route: 048
     Dates: start: 20040101
  8. AMBIEN [Concomitant]
     Route: 048
     Dates: start: 19780101
  9. CALCIUM [Concomitant]
     Route: 048
     Dates: start: 20040101
  10. CALCITRIOL [Concomitant]
     Route: 048
     Dates: start: 20040101
  11. VITAMIN E [Concomitant]
     Dates: start: 20050101
  12. VITAMIN A [Concomitant]
     Dates: start: 20050101
  13. VITAMIN D [Concomitant]
     Dates: start: 20050101
  14. MEPHYTON [Concomitant]
     Route: 048
     Dates: start: 20050101
  15. CHOLESTYRAMINE [Concomitant]
     Dates: start: 19730101
  16. VITAMIN B-12 [Concomitant]
     Dates: start: 20050101

REACTIONS (1)
  - NEURALGIA [None]
